FAERS Safety Report 23342395 (Version 1)
Quarter: 2023Q4

REPORT INFORMATION
  Report Type: Spontaneous
  Country: US (occurrence: None)
  Receive Date: 20231226
  Receipt Date: 20231226
  Transmission Date: 20240109
  Serious: No
  Sender: FDA-Public Use
  Company Number: None

PATIENT

DRUGS (1)
  1. CAFFEINE AND SODIUM BENZOATE [Suspect]
     Active Substance: CAFFEINE\SODIUM BENZOATE
     Dosage: OTHER ROUTE : IM OR SLOW IV USE;?
     Route: 050

REACTIONS (4)
  - Product preparation error [None]
  - Incorrect dose administered [None]
  - Product dispensing error [None]
  - Product label confusion [None]
